FAERS Safety Report 8618997 (Version 2)
Quarter: 2013Q2

REPORT INFORMATION
  Report Type: Report from Study
  Country: JP (occurrence: JP)
  Receive Date: 20120618
  Receipt Date: 20130403
  Transmission Date: 20140414
  Serious: Yes (Death, Hospitalization, Other)
  Sender: FDA-Public Use
  Company Number: PHHY2012JP051253

PATIENT
  Age: 79 Year
  Sex: Male
  Weight: 72 kg

DRUGS (7)
  1. ICL670A [Suspect]
     Indication: MYELODYSPLASTIC SYNDROME
     Dosage: 500 MG, DAILY
     Route: 048
     Dates: start: 20100304, end: 20100309
  2. ICL670A [Suspect]
     Dosage: 1000 MG, DAILY
     Route: 048
     Dates: start: 20100310, end: 20100409
  3. ICL670A [Suspect]
     Dosage: 500 MG, DAILY
     Route: 048
     Dates: start: 20100416, end: 20100416
  4. ALOSENN [Concomitant]
     Dosage: 0.5 G, UNK
     Route: 048
     Dates: end: 20100913
  5. GLAKAY [Concomitant]
     Indication: MYELODYSPLASTIC SYNDROME
     Dosage: 45 MG, UNK
     Route: 048
     Dates: start: 20081105, end: 20100913
  6. CHLOR-TRIMETON [Concomitant]
     Indication: PROPHYLAXIS
     Dosage: 10 MG, UNK
     Dates: start: 20100817, end: 20100913
  7. SOLU-CORTEF [Concomitant]
     Indication: PROPHYLAXIS
     Dosage: 100 MG, UNK
     Dates: start: 20100817, end: 20100913

REACTIONS (9)
  - Myelodysplastic syndrome [Fatal]
  - Condition aggravated [Fatal]
  - Interstitial lung disease [Recovered/Resolved]
  - Agranulocytosis [Not Recovered/Not Resolved]
  - Pyrexia [Recovered/Resolved]
  - White blood cell count decreased [Not Recovered/Not Resolved]
  - Platelet count decreased [Not Recovered/Not Resolved]
  - Lymphocyte percentage increased [Not Recovered/Not Resolved]
  - Body temperature fluctuation [Unknown]
